FAERS Safety Report 8305028-7 (Version None)
Quarter: 2012Q2

REPORT INFORMATION
  Report Type: 
  Country: None (occurrence: None)
  Receive Date: 20120423
  Receipt Date: 20120419
  Transmission Date: 20120825
  Serious: Yes (Death, Hospitalization, Other)
  Sender: FDA-Public Use
  Company Number: CN-ROCHE-640646

PATIENT
  Sex: Female
  Weight: 35 kg

DRUGS (6)
  1. MYCOPHENOLATE MOFETIL (CELLCEPT) [Suspect]
     Route: 048
  2. PROGRAF [Concomitant]
     Indication: RENAL TRANSPLANT
     Route: 048
  3. MYCOPHENOLATE MOFETIL (CELLCEPT) [Suspect]
     Indication: RENAL TRANSPLANT
     Route: 048
  4. PREDNISONE TAB [Concomitant]
     Indication: RENAL TRANSPLANT
     Route: 048
  5. NEORAL [Concomitant]
     Indication: RENAL TRANSPLANT
     Route: 048
     Dates: start: 20010618, end: 20050801
  6. MYCOPHENOLATE MOFETIL (CELLCEPT) [Suspect]
     Route: 048

REACTIONS (9)
  - BLOOD DISORDER [None]
  - RENAL IMPAIRMENT [None]
  - GINGIVAL BLEEDING [None]
  - CARDIAC FAILURE [None]
  - ACUTE MYOCARDIAL INFARCTION [None]
  - PULMONARY FUNCTION TEST DECREASED [None]
  - BLOOD CREATININE INCREASED [None]
  - HAEMOGLOBIN DECREASED [None]
  - WEIGHT DECREASED [None]
